FAERS Safety Report 23938098 (Version 1)
Quarter: 2024Q2

REPORT INFORMATION
  Report Type: Spontaneous
  Country: US (occurrence: None)
  Receive Date: 20240604
  Receipt Date: 20240604
  Transmission Date: 20240716
  Serious: Yes (Death)
  Sender: FDA-Public Use
  Company Number: None

PATIENT
  Age: 91 Year
  Sex: Female

DRUGS (16)
  1. REPATHA [Suspect]
     Active Substance: EVOLOCUMAB
     Indication: Hypercholesterolaemia
     Dosage: FREQUENCY : EVERY OTHER WEEK;?
     Route: 023
     Dates: start: 20200203, end: 20240531
  2. REPATHA [Concomitant]
     Active Substance: EVOLOCUMAB
  3. ACIPHEX [Concomitant]
     Active Substance: RABEPRAZOLE SODIUM
  4. ASPIRIN [Concomitant]
     Active Substance: ASPIRIN
  5. covid19 vaccing (pfizer)MDV [Concomitant]
  6. covid19 vaccine (pfizer) mdv dose 2 [Concomitant]
  7. covid19 vaccine (pfizer) mdv dose 2 [Concomitant]
  8. covid19 vaccine (pfizer) mdv dose 2 [Concomitant]
  9. DULOXETINE DR [Concomitant]
  10. ELIQUIS [Concomitant]
  11. FUROSEMIDE [Concomitant]
  12. LEVOTHYROXINE [Concomitant]
     Active Substance: LEVOTHYROXINE\LEVOTHYROXINE SODIUM
  13. LIOTHYRONINE [Concomitant]
  14. HYDROCHLOROTHIAZIDE\LISINOPRIL [Concomitant]
     Active Substance: HYDROCHLOROTHIAZIDE\LISINOPRIL
  15. REPAGLINIDE [Concomitant]
     Active Substance: REPAGLINIDE
  16. vitajmin e [Concomitant]

REACTIONS (1)
  - Death [None]

NARRATIVE: CASE EVENT DATE: 20240531
